FAERS Safety Report 20741126 (Version 2)
Quarter: 2022Q2

REPORT INFORMATION
  Report Type: Spontaneous
  Country: US (occurrence: US)
  Receive Date: 20220422
  Receipt Date: 20220525
  Transmission Date: 20220721
  Serious: Yes (Hospitalization)
  Sender: FDA-Public Use
  Company Number: US-BAYER-2022A053734

PATIENT
  Age: 65 Year
  Sex: Female

DRUGS (1)
  1. KERENDIA [Suspect]
     Active Substance: FINERENONE

REACTIONS (5)
  - Hyperkalaemia [None]
  - Nausea [None]
  - Vomiting [None]
  - Blood pressure decreased [None]
  - Hypoperfusion [None]

NARRATIVE: CASE EVENT DATE: 20220101
